FAERS Safety Report 9818091 (Version 1)
Quarter: 2013Q4

REPORT INFORMATION
  Report Type: Spontaneous
  Country: US (occurrence: None)
  Receive Date: 20131223
  Receipt Date: 20131223
  Transmission Date: 20140711
  Serious: No
  Sender: FDA-Public Use
  Company Number: 2202018

PATIENT
  Sex: Female

DRUGS (2)
  1. PICATO [Suspect]
     Indication: ACTINIC KERATOSIS
     Route: 061
     Dates: start: 20130119, end: 20130120
  2. PICATO [Suspect]
     Indication: ACTINIC KERATOSIS
     Route: 061
     Dates: start: 20130118, end: 20130118

REACTIONS (10)
  - Drug ineffective [None]
  - Application site irritation [None]
  - Application site erythema [None]
  - Application site pain [None]
  - Application site exfoliation [None]
  - Application site pustules [None]
  - Incorrect dose administered [None]
  - Drug administration error [None]
  - Drug administered at inappropriate site [None]
  - Inappropriate schedule of drug administration [None]
